FAERS Safety Report 9948083 (Version 1)
Quarter: 2014Q1

REPORT INFORMATION
  Report Type: Report from Study
  Country: US (occurrence: US)
  Receive Date: 20140303
  Receipt Date: 20140303
  Transmission Date: 20141002
  Serious: No
  Sender: FDA-Public Use
  Company Number: US-ABBVIE-13P-163-1055174-00

PATIENT
  Sex: Female
  Weight: 81.72 kg

DRUGS (2)
  1. HUMIRA [Suspect]
     Indication: POLYARTHRITIS
     Dates: start: 201211, end: 201302
  2. HUMIRA [Suspect]
     Dates: start: 201302

REACTIONS (2)
  - Off label use [Unknown]
  - Drug ineffective [Recovering/Resolving]
